FAERS Safety Report 10256828 (Version 1)
Quarter: 2014Q2

REPORT INFORMATION
  Report Type: Spontaneous
  Country: US (occurrence: US)
  Receive Date: 20140625
  Receipt Date: 20140625
  Transmission Date: 20141212
  Serious: Yes (Hospitalization)
  Sender: FDA-Public Use
  Company Number: US-ROCHE-1423297

PATIENT
  Sex: Male

DRUGS (1)
  1. PEGASYS [Suspect]
     Indication: HEPATITIS C
     Dosage: LAST DOSE: 07/JUN/2014
     Route: 065

REACTIONS (3)
  - Pyrexia [Unknown]
  - Colitis [Unknown]
  - Cough [Unknown]
